FAERS Safety Report 21004873 (Version 1)
Quarter: 2022Q2

REPORT INFORMATION
  Report Type: Report from Study
  Country: US (occurrence: US)
  Receive Date: 20220624
  Receipt Date: 20220624
  Transmission Date: 20220721
  Serious: Yes (Hospitalization, Other)
  Sender: FDA-Public Use
  Company Number: US-JNJFOC-20220641142

PATIENT
  Age: 6 Decade
  Sex: Female

DRUGS (2)
  1. SIMPONI ARIA [Suspect]
     Active Substance: GOLIMUMAB
     Indication: Rheumatoid arthritis
     Dosage: 6 TO 7 YEARS
     Route: 041
  2. GOLIMUMAB [Suspect]
     Active Substance: GOLIMUMAB
     Indication: Rheumatoid arthritis
     Route: 058
     Dates: start: 202204

REACTIONS (4)
  - Rheumatoid arthritis [Unknown]
  - Hepatitis A [Recovered/Resolved]
  - Urinary tract infection [Unknown]
  - Therapeutic response decreased [Unknown]
